FAERS Safety Report 11461996 (Version 1)
Quarter: 2015Q3

REPORT INFORMATION
  Report Type: Spontaneous
  Country: US (occurrence: US)
  Receive Date: 20150831
  Receipt Date: 20150831
  Transmission Date: 20151125
  Serious: Yes (Other)
  Sender: FDA-Public Use
  Company Number: US-ELI_LILLY_AND_COMPANY-US201007002499

PATIENT
  Age: 42 Year
  Sex: Female

DRUGS (4)
  1. CYMBALTA [Suspect]
     Active Substance: DULOXETINE HYDROCHLORIDE
     Indication: ANXIETY
     Dosage: 30 MG, EACH EVENING
     Dates: start: 20100707, end: 20100729
  2. CYMBALTA [Suspect]
     Active Substance: DULOXETINE HYDROCHLORIDE
     Dosage: 30 MG, UNK
  3. LORAZEPAM. [Concomitant]
     Active Substance: LORAZEPAM
     Dosage: 1 MG, 2/D
  4. TYLENOL [Concomitant]
     Active Substance: ACETAMINOPHEN

REACTIONS (14)
  - Diarrhoea [Unknown]
  - Paraesthesia [Unknown]
  - Panic attack [Unknown]
  - Burning sensation [Unknown]
  - Proctitis [Unknown]
  - Bowel movement irregularity [Unknown]
  - Feeling jittery [Unknown]
  - Somnolence [Recovering/Resolving]
  - Haematochezia [Unknown]
  - Heart rate increased [Unknown]
  - Menopausal symptoms [Unknown]
  - Micturition urgency [Unknown]
  - Flatulence [Unknown]
  - Eructation [Unknown]

NARRATIVE: CASE EVENT DATE: 20100707
